FAERS Safety Report 7984387-9 (Version None)
Quarter: 2011Q4

REPORT INFORMATION
  Report Type: 
  Country: None (occurrence: None)
  Receive Date: 20111214
  Receipt Date: 20111206
  Transmission Date: 20120403
  Serious: Yes (Other)
  Sender: FDA-Public Use
  Company Number: 2011120022

PATIENT
  Sex: Female

DRUGS (1)
  1. LEVSIN SL (HYOSCYAMINE SULFATE) [Suspect]
     Indication: IRRITABLE BOWEL SYNDROME
     Dosage: ORAL
     Route: 048
     Dates: start: 20100101

REACTIONS (7)
  - AMNESIA [None]
  - DYSPHAGIA [None]
  - VISION BLURRED [None]
  - MUSCLE DISORDER [None]
  - NASAL DRYNESS [None]
  - DYSARTHRIA [None]
  - DRY MOUTH [None]
